FAERS Safety Report 9521813 (Version 2)
Quarter: 2013Q3

REPORT INFORMATION
  Report Type: Report from Study
  Country: VE (occurrence: VE)
  Receive Date: 20130913
  Receipt Date: 20130917
  Transmission Date: 20140515
  Serious: Yes (Hospitalization, Other)
  Sender: FDA-Public Use
  Company Number: PHHY2013VE099722

PATIENT
  Age: 31 Year
  Sex: Male

DRUGS (2)
  1. LEPONEX [Suspect]
     Indication: SCHIZOPHRENIA
     Dosage: 100 MG DAILY
     Route: 048
     Dates: start: 2001
  2. LEPONEX [Suspect]
     Indication: MENTAL DISORDER
     Dosage: 100 MG, UNK
     Route: 048
     Dates: start: 20130906

REACTIONS (9)
  - Mental disorder [Not Recovered/Not Resolved]
  - Hallucination [Recovering/Resolving]
  - Insomnia [Recovering/Resolving]
  - Decreased appetite [Recovering/Resolving]
  - Increased appetite [Unknown]
  - Eye disorder [Not Recovered/Not Resolved]
  - Restlessness [Not Recovered/Not Resolved]
  - Somnolence [Recovering/Resolving]
  - Drug ineffective [Unknown]
